FAERS Safety Report 14502650 (Version 1)
Quarter: 2018Q1

REPORT INFORMATION
  Report Type: Spontaneous
  Country: US (occurrence: US)
  Receive Date: 20180208
  Receipt Date: 20180208
  Transmission Date: 20180509
  Serious: Yes (Hospitalization, Other)
  Sender: FDA-Public Use
  Company Number: US-GLENMARK PHARMACEUTICALS-2018GMK031303

PATIENT
  Age: 74 Year
  Sex: Female

DRUGS (23)
  1. KETOPROFEN. [Suspect]
     Active Substance: KETOPROFEN
     Dosage: UNK, APPLIED CREAM OVER HER UPPER BODY, ARMS, PERINEUM, AND VULVA
     Route: 061
  2. LORAZEPAM. [Concomitant]
     Active Substance: LORAZEPAM
     Indication: PRODUCT USED FOR UNKNOWN INDICATION
     Dosage: 0.5 MG, TWICE DAILY AS NEEDED, AS NECESSARY
     Route: 065
  3. DONEPEZIL. [Concomitant]
     Active Substance: DONEPEZIL
     Indication: PRODUCT USED FOR UNKNOWN INDICATION
     Dosage: 10 MG, OD NIGHTLY
     Route: 065
  4. KETAMINE                           /00171202/ [Suspect]
     Active Substance: KETAMINE
     Indication: PAIN
     Dosage: UNK, APPLIED THE CREAM OVER HER UPPER BODY, ARMS, PERINEUM, AND VULVA
     Route: 061
  5. NAPROXEN. [Concomitant]
     Active Substance: NAPROXEN
     Indication: PAIN
     Dosage: 250 MG, TWICE DAILY AS NEEDED, AS NECESSARY
  6. LIOTHYRONINE [Concomitant]
     Active Substance: LIOTHYRONINE
     Indication: PRODUCT USED FOR UNKNOWN INDICATION
     Dosage: 5 ?G, OD
     Route: 065
  7. CLONIDINE                          /00171102/ [Suspect]
     Active Substance: CLONIDINE
     Dosage: UNK, APPLIED THE CREAM OVER HER UPPER BODY, ARMS, PERINEUM, AND VULVA
     Route: 061
  8. CALCIUM + VITAMIN D                /01483701/ [Concomitant]
     Active Substance: CALCIUM\VITAMIN D
     Indication: PRODUCT USED FOR UNKNOWN INDICATION
     Dosage: UNK
     Route: 065
  9. KETOPROFEN. [Suspect]
     Active Substance: KETOPROFEN
     Indication: PAIN
     Dosage: UNK, APPLIED PERI-VAGINALLY
     Route: 061
  10. KETAMINE                           /00171202/ [Suspect]
     Active Substance: KETAMINE
     Dosage: UNK, APPLIED PERI-VAGINALLY
     Route: 061
  11. CLONIDINE                          /00171102/ [Suspect]
     Active Substance: CLONIDINE
     Indication: PAIN
     Dosage: UNK, APPLIED PERI-VAGINALLY
     Route: 061
  12. LORATADINE. [Concomitant]
     Active Substance: LORATADINE
     Indication: HYPERSENSITIVITY
     Dosage: 10 MG, AS NECESSARY
     Route: 065
  13. RISPERIDONE. [Concomitant]
     Active Substance: RISPERIDONE
     Indication: PRODUCT USED FOR UNKNOWN INDICATION
     Dosage: 0.5 MG, PRN, EVERY 8H AS NEEDED
     Route: 065
  14. LIDOCAINE. [Suspect]
     Active Substance: LIDOCAINE
     Indication: PAIN
     Dosage: UNK, APPLIED PERI-VAGINALLY
     Route: 061
  15. LEVOTHYROXINE. [Concomitant]
     Active Substance: LEVOTHYROXINE
     Indication: PRODUCT USED FOR UNKNOWN INDICATION
     Dosage: 225 ?G, IN DIVIDED DOSES
     Route: 065
  16. GABAPENTIN. [Suspect]
     Active Substance: GABAPENTIN
     Indication: PAIN
     Dosage: UNK, APPLIED PERI-VAGINALLY
     Route: 061
  17. GABAPENTIN. [Suspect]
     Active Substance: GABAPENTIN
     Dosage: UNK, APPLIED CREAM OVER HER UPPER BODY, ARMS, PERINEUM, AND VULVA
     Route: 061
  18. LIDOCAINE. [Suspect]
     Active Substance: LIDOCAINE
     Dosage: UNK, APPLIED THE CREAM OVER HER UPPER BODY, ARMS, PERINEUM, AND VULVA
     Route: 061
  19. OXYCODONE AND ACETAMINOPHEN [Concomitant]
     Active Substance: ACETAMINOPHEN\OXYCODONE HYDROCHLORIDE
     Indication: PAIN
     Dosage: UNK, EVERY 8H AS NEEDED
     Route: 065
  20. OLOPATADINE. [Concomitant]
     Active Substance: OLOPATADINE
     Indication: PRODUCT USED FOR UNKNOWN INDICATION
     Dosage: 1 GTT, 1 DROP IN EACH EYE TWICE DAILY
     Route: 047
  21. SERTRALINE [Concomitant]
     Active Substance: SERTRALINE HYDROCHLORIDE
     Indication: PRODUCT USED FOR UNKNOWN INDICATION
     Dosage: 100 MG, OD
     Route: 065
  22. PREGABALIN. [Concomitant]
     Active Substance: PREGABALIN
     Indication: PRODUCT USED FOR UNKNOWN INDICATION
     Dosage: 75 MG, OD, NIGHTLY
     Route: 065
  23. CONJUGATED OESTROGENS [Concomitant]
     Indication: PRODUCT USED FOR UNKNOWN INDICATION
     Dosage: UNK, TWICE A WEEK
     Route: 067

REACTIONS (1)
  - Delirium [Recovered/Resolved]
